FAERS Safety Report 19440638 (Version 4)
Quarter: 2023Q1

REPORT INFORMATION
  Report Type: Spontaneous
  Country: GB (occurrence: GB)
  Receive Date: 20210621
  Receipt Date: 20230116
  Transmission Date: 20230417
  Serious: Yes (Hospitalization, Other)
  Sender: FDA-Public Use
  Company Number: GB-SUN PHARMACEUTICAL INDUSTRIES LTD-2021RR-301338

PATIENT
  Age: 40 Year
  Sex: Male

DRUGS (4)
  1. CLARITHROMYCIN [Interacting]
     Active Substance: CLARITHROMYCIN
     Indication: Pneumonia
     Dosage: 500 MILLIGRAM, BID
     Route: 048
  2. METHADONE [Interacting]
     Active Substance: METHADONE HYDROCHLORIDE
     Indication: Drug dependence
     Dosage: 60 MILLIGRAM, DAILY
     Route: 065
  3. AMOXICILLIN [Concomitant]
     Active Substance: AMOXICILLIN
     Indication: Pneumonia
     Dosage: 500 MILLIGRAM, TID
     Route: 048
  4. AROVI [Concomitant]
     Indication: Product used for unknown indication
     Dosage: 130 MILLIGRAM, QD
     Route: 058

REACTIONS (2)
  - Drug interaction [Unknown]
  - Toxicity to various agents [Unknown]
